FAERS Safety Report 9820380 (Version 1)
Quarter: 2013Q4

REPORT INFORMATION
  Report Type: Spontaneous
  Country: US (occurrence: None)
  Receive Date: 20131028
  Receipt Date: 20131028
  Transmission Date: 20140711
  Serious: Yes (Life-Threatening)
  Sender: FDA-Public Use
  Company Number: SYM-2013-01740

PATIENT
  Age: 37 Year
  Sex: Male

DRUGS (5)
  1. WELLBUTRIN [Suspect]
     Indication: SUICIDE ATTEMPT
     Route: 048
     Dates: start: 20130303, end: 20130303
  2. EFAVIRENZ [Suspect]
     Indication: HIV INFECTION
     Route: 048
     Dates: start: 20120918, end: 20130304
  3. XANAX [Suspect]
     Indication: SUICIDE ATTEMPT
     Route: 048
     Dates: start: 20130303, end: 20130303
  4. CLONAZEPAM [Suspect]
     Indication: SUICIDE ATTEMPT
     Route: 048
     Dates: start: 20130303
  5. EPZICOM (ABACAVIR SULFATE W/LAMIVUDINE) [Concomitant]

REACTIONS (1)
  - Suicide attempt [None]
